FAERS Safety Report 22668619 (Version 2)
Quarter: 2023Q4

REPORT INFORMATION
  Report Type: Spontaneous
  Country: US (occurrence: US)
  Receive Date: 20230704
  Receipt Date: 20231001
  Transmission Date: 20240110
  Serious: Yes (Hospitalization)
  Sender: FDA-Public Use
  Company Number: US-SA-2023SA200549

PATIENT
  Age: 35 Year
  Sex: Female

DRUGS (1)
  1. DUPIXENT [Suspect]
     Active Substance: DUPILUMAB
     Indication: Asthma
     Dosage: 300 MG, QOW
     Route: 058
     Dates: start: 20230629

REACTIONS (6)
  - Dehydration [Unknown]
  - Swelling [Unknown]
  - Paraesthesia [Unknown]
  - Loss of consciousness [Unknown]
  - Hypoaesthesia [Unknown]
  - Sinusitis [Unknown]

NARRATIVE: CASE EVENT DATE: 20230629
